FAERS Safety Report 5266212-2 (Version None)
Quarter: 2007Q1

REPORT INFORMATION
  Report Type: 
  Country: None (occurrence: None)
  Receive Date: 20070315
  Receipt Date: 20070313
  Transmission Date: 20070707
  Serious: Yes (Other)
  Sender: FDA-Public Use
  Company Number: US-GLAXOSMITHKLINE-A0643080A

PATIENT
  Age: 53 Year
  Sex: Female

DRUGS (6)
  1. ADVAIR DISKUS 100/50 [Suspect]
     Indication: ASTHMA
     Dosage: 1PUFF TWICE PER DAY
     Route: 055
  2. ACCOLATE [Concomitant]
  3. NASONEX [Concomitant]
  4. ASTELIN [Concomitant]
  5. KADIAN [Concomitant]
  6. XOLAIR [Concomitant]

REACTIONS (5)
  - EYE DISORDER [None]
  - RESORPTION BONE INCREASED [None]
  - RETINAL DETACHMENT [None]
  - VISION BLURRED [None]
  - VITREOUS FLOATERS [None]
